FAERS Safety Report 6674286-7 (Version None)
Quarter: 2010Q2

REPORT INFORMATION
  Report Type: 
  Country: None (occurrence: None)
  Receive Date: 20100409
  Receipt Date: 20100330
  Transmission Date: 20101027
  Serious: Yes (Other)
  Sender: FDA-Public Use
  Company Number: HR-JNJFOC-20100400599

PATIENT
  Age: 47 Year
  Sex: Female

DRUGS (2)
  1. RISPERIDONE [Suspect]
     Indication: DRUG USE FOR UNKNOWN INDICATION
     Route: 065
  2. RISPERIDONE [Suspect]
     Route: 065

REACTIONS (2)
  - HAEMORRHAGE [None]
  - HYPERPROLACTINAEMIA [None]
